FAERS Safety Report 8921361 (Version 1)
Quarter: 2012Q4

REPORT INFORMATION
  Report Type: 
  Country: GB (occurrence: GB)
  Receive Date: 20121121
  Receipt Date: 20121121
  Transmission Date: 20130627
  Serious: Yes (Other)
  Sender: FDA-Public Use
  Company Number: GB-WATSON-2012-19660

PATIENT
  Sex: Male

DRUGS (5)
  1. CLOPIDOGREL (UNKNOWN) [Suspect]
     Indication: PRODUCT USED FOR UNKNOWN INDICATION
     Dosage: 600mg, UNK Dosage Form : Unspecified.
     Route: 065
  2. REOPRO [Suspect]
     Indication: PERCUTANEOUS CORONARY INTERVENTION
     Dosage: UNK intravenous bolus
     Route: 042
  3. REOPRO [Suspect]
     Dosage: intravenous infusion
     Route: 042
  4. ASA [Suspect]
     Indication: PRODUCT USED FOR UNKNOWN INDICATION
     Dosage: 300mg, UNK Dosage Form : Unspecified.
     Route: 065
  5. HEPARIN SODIUM [Suspect]
     Indication: PRODUCT USED FOR UNKNOWN INDICATION
     Dosage: 5000 IU,UNK Dosage Form  : Unspecified.
     Route: 065

REACTIONS (1)
  - Thrombosis in device [Unknown]
